FAERS Safety Report 5121604-7 (Version None)
Quarter: 2006Q4

REPORT INFORMATION
  Report Type: 
  Country: None (occurrence: None)
  Receive Date: 20061006
  Receipt Date: 20060922
  Transmission Date: 20070319
  Serious: Yes (Hospitalization)
  Sender: FDA-Public Use
  Company Number: DO-AVENTIS-200614941EU

PATIENT
  Age: 57 Year
  Sex: Female
  Weight: 52.62 kg

DRUGS (1)
  1. FUROSEMIDE [Suspect]
     Indication: DRUG USE FOR UNKNOWN INDICATION
     Route: 048

REACTIONS (11)
  - ATRIAL HYPERTROPHY [None]
  - DEHYDRATION [None]
  - HYPOKALAEMIA [None]
  - HYPOTENSION [None]
  - NEPHROCALCINOSIS [None]
  - PSEUDO-BARTTER SYNDROME [None]
  - RENAL FAILURE [None]
  - RESPIRATORY ACIDOSIS [None]
  - RESPIRATORY FAILURE [None]
  - TACHYCARDIA [None]
  - TACHYPNOEA [None]
